FAERS Safety Report 15933413 (Version 1)
Quarter: 2019Q1

REPORT INFORMATION
  Report Type: Spontaneous
  Country: US (occurrence: US)
  Receive Date: 20190207
  Receipt Date: 20190207
  Transmission Date: 20190417
  Serious: Yes (Hospitalization, Other)
  Sender: FDA-Public Use
  Company Number: US-OTSUKA-2018_024124

PATIENT
  Sex: Female

DRUGS (2)
  1. ABILIFY [Suspect]
     Active Substance: ARIPIPRAZOLE
     Indication: SCHIZOPHRENIA
     Dosage: 15-30 MG, QD
     Route: 065
     Dates: start: 2007, end: 2009
  2. ABILIFY [Suspect]
     Active Substance: ARIPIPRAZOLE
     Indication: MAJOR DEPRESSION

REACTIONS (10)
  - Suicide attempt [Not Recovered/Not Resolved]
  - Suicidal ideation [Not Recovered/Not Resolved]
  - Compulsive sexual behaviour [Not Recovered/Not Resolved]
  - Gambling disorder [Not Recovered/Not Resolved]
  - Economic problem [Unknown]
  - Loss of employment [Unknown]
  - Mental disorder [Unknown]
  - Eating disorder [Not Recovered/Not Resolved]
  - Compulsive shopping [Not Recovered/Not Resolved]
  - Obsessive-compulsive disorder [Unknown]
